FAERS Safety Report 4384004-3 (Version None)
Quarter: 2004Q2

REPORT INFORMATION
  Report Type: 
  Country: None (occurrence: None)
  Receive Date: 20040624
  Receipt Date: 20040618
  Transmission Date: 20050107
  Serious: Yes (Death)
  Sender: FDA-Public Use
  Company Number: 200412101JP

PATIENT
  Sex: Female

DRUGS (2)
  1. TAXOTERE [Suspect]
     Indication: OVARIAN CANCER
     Route: 041
  2. CARBOPLATIN [Suspect]
     Indication: OVARIAN CANCER
     Dosage: DOSE: UNK
     Route: 041

REACTIONS (1)
  - CEREBRAL HAEMORRHAGE [None]
